FAERS Safety Report 4591377-5 (Version None)
Quarter: 2005Q1

REPORT INFORMATION
  Report Type: 
  Country: None (occurrence: None)
  Receive Date: 20050223
  Receipt Date: 20050223
  Transmission Date: 20050727
  Serious: No
  Sender: FDA-Public Use
  Company Number: None

PATIENT
  Sex: Female

DRUGS (3)
  1. DYAZIDE [Suspect]
     Indication: HYPERTENSION
     Dosage: 37.5/25 MG   ONE PO QD
     Route: 048
  2. MACRODANTIN [Suspect]
     Indication: INFECTION PROPHYLAXIS
     Dosage: 50 MG  ONE PO QD
     Route: 048
  3. MACRODANTIN [Suspect]
     Indication: URINARY TRACT INFECTION
     Dosage: 50 MG  ONE PO QD
     Route: 048

REACTIONS (1)
  - DIZZINESS [None]
